FAERS Safety Report 13238656 (Version 1)
Quarter: 2017Q1

REPORT INFORMATION
  Report Type: Spontaneous
  Country: US (occurrence: US)
  Receive Date: 20170216
  Receipt Date: 20170216
  Transmission Date: 20170428
  Serious: Yes (Other)
  Sender: FDA-Public Use
  Company Number: US-SCIEGEN PHARMACEUTICALS INC-2017SCILIT00090

PATIENT
  Age: 6 Decade
  Sex: Male

DRUGS (2)
  1. ATORVASTATIN CALCIUM. [Suspect]
     Active Substance: ATORVASTATIN CALCIUM
     Indication: HYPERLIPIDAEMIA
     Dosage: 20 MG, QD
     Route: 065
  2. ATORVASTATIN CALCIUM. [Suspect]
     Active Substance: ATORVASTATIN CALCIUM
     Indication: PROPHYLAXIS
     Dosage: 10 MG, QD
     Route: 065

REACTIONS (8)
  - Aggression [Recovered/Resolved]
  - Depression [Recovered/Resolved]
  - Irritability [Recovered/Resolved]
  - Personality change [Recovered/Resolved]
  - Anhedonia [Recovered/Resolved]
  - Mood altered [Recovered/Resolved]
  - Weight increased [Recovered/Resolved]
  - Gastrooesophageal reflux disease [Recovered/Resolved]
